FAERS Safety Report 14816675 (Version 2)
Quarter: 2018Q2

REPORT INFORMATION
  Report Type: Spontaneous
  Country: FR (occurrence: FR)
  Receive Date: 20180426
  Receipt Date: 20180508
  Transmission Date: 20180711
  Serious: Yes (Other)
  Sender: FDA-Public Use
  Company Number: FR-BEH-2018090107

PATIENT
  Age: 37 Year
  Sex: Male

DRUGS (2)
  1. PRIVIGEN [Suspect]
     Active Substance: HUMAN IMMUNOGLOBULIN G
     Indication: GUILLAIN-BARRE SYNDROME
     Dosage: 40 G, QD
     Route: 042
     Dates: start: 20180218, end: 20180222
  2. PRIVIGEN [Suspect]
     Active Substance: HUMAN IMMUNOGLOBULIN G
     Dosage: 0.4 G/KG
     Route: 042
     Dates: start: 20180218, end: 20180222

REACTIONS (4)
  - Laboratory test interference [Recovered/Resolved]
  - HTLV test positive [Recovered/Resolved]
  - Injection site pain [Recovered/Resolved]
  - Erythema [Recovered/Resolved]

NARRATIVE: CASE EVENT DATE: 20180218
